FAERS Safety Report 5851972-X (Version None)
Quarter: 2008Q3

REPORT INFORMATION
  Report Type: 
  Country: None (occurrence: None)
  Receive Date: 20080819
  Receipt Date: 20080808
  Transmission Date: 20090109
  Serious: Yes (Hospitalization)
  Sender: FDA-Public Use
  Company Number: 2008AL005899

PATIENT
  Age: 76 Year
  Sex: Male
  Weight: 88.905 kg

DRUGS (1)
  1. DIGOXIN [Suspect]
     Indication: ARRHYTHMIA
     Dosage: 0.25MG DAILY PO
     Route: 048

REACTIONS (7)
  - ADVERSE DRUG REACTION [None]
  - CARDIAC PACEMAKER INSERTION [None]
  - DIZZINESS [None]
  - NAUSEA [None]
  - PNEUMONIA [None]
  - VISION BLURRED [None]
  - WEIGHT DECREASED [None]
